FAERS Safety Report 17749993 (Version 3)
Quarter: 2020Q2

REPORT INFORMATION
  Report Type: Spontaneous
  Country: SI (occurrence: SI)
  Receive Date: 20200506
  Receipt Date: 20200602
  Transmission Date: 20200714
  Serious: No
  Sender: FDA-Public Use
  Company Number: SI-TOLMAR, INC.-20SI021156

PATIENT
  Sex: Male

DRUGS (1)
  1. ELIGARD [Suspect]
     Active Substance: LEUPROLIDE ACETATE
     Indication: HORMONE-REFRACTORY PROSTATE CANCER
     Dosage: 45 MG, Q 6 MONTH
     Route: 058

REACTIONS (4)
  - Device leakage [None]
  - Syringe issue [None]
  - Intercepted product preparation error [None]
  - Wrong technique in product usage process [None]
